FAERS Safety Report 15964475 (Version 1)
Quarter: 2019Q1

REPORT INFORMATION
  Report Type: Spontaneous
  Country: IT (occurrence: IT)
  Receive Date: 20190215
  Receipt Date: 20190215
  Transmission Date: 20190417
  Serious: Yes (Other)
  Sender: FDA-Public Use
  Company Number: IT-AUROBINDO-AUR-APL-2019-008331

PATIENT

DRUGS (1)
  1. SEVELAMER [Suspect]
     Active Substance: SEVELAMER
     Indication: END STAGE RENAL DISEASE
     Dosage: 4.8 G DAILY
     Route: 065

REACTIONS (2)
  - Crystal deposit intestine [Unknown]
  - Colitis [Unknown]
